FAERS Safety Report 24530990 (Version 1)
Quarter: 2024Q4

REPORT INFORMATION
  Report Type: Spontaneous
  Country: JP (occurrence: JP)
  Receive Date: 20241021
  Receipt Date: 20241021
  Transmission Date: 20250114
  Serious: No
  Sender: ASTELLAS
  Company Number: JP-ASTELLAS-2024-AER-012913

PATIENT

DRUGS (1)
  1. VESICARE [Suspect]
     Active Substance: SOLIFENACIN SUCCINATE
     Indication: Product used for unknown indication
     Route: 065

REACTIONS (1)
  - Product prescribing issue [Unknown]
